FAERS Safety Report 10069908 (Version 2)
Quarter: 2014Q2

REPORT INFORMATION
  Report Type: Spontaneous
  Country: CA (occurrence: CA)
  Receive Date: 20140410
  Receipt Date: 20140507
  Transmission Date: 20141212
  Serious: Yes (Other)
  Sender: FDA-Public Use
  Company Number: CA-AMGEN-CANSP2014024185

PATIENT
  Age: 67 Year
  Sex: Male

DRUGS (1)
  1. PROLIA [Suspect]
     Indication: WHITE BLOOD CELL COUNT INCREASED
     Dosage: 60 MG, Q6MO
     Route: 065
     Dates: start: 20131214

REACTIONS (1)
  - Lung neoplasm malignant [Not Recovered/Not Resolved]
